FAERS Safety Report 25919529 (Version 1)
Quarter: 2025Q4

REPORT INFORMATION
  Report Type: Spontaneous
  Country: US (occurrence: US)
  Receive Date: 20251014
  Receipt Date: 20251014
  Transmission Date: 20260117
  Serious: No
  Sender: KALVISTA PHARMACEUTICALS
  Company Number: US-KP-00089

PATIENT
  Sex: Female

DRUGS (1)
  1. EKTERLY [Suspect]
     Active Substance: SEBETRALSTAT
     Indication: Hereditary angioedema
     Dosage: TIME INTERVAL: AS NECESSARY
     Route: 048

REACTIONS (3)
  - Off label use [Unknown]
  - Product packaging issue [Unknown]
  - Pruritus [Unknown]
